FAERS Safety Report 21032288 (Version 1)
Quarter: 2022Q3

REPORT INFORMATION
  Report Type: Spontaneous
  Country: AR (occurrence: AR)
  Receive Date: 20220701
  Receipt Date: 20220701
  Transmission Date: 20221026
  Serious: Yes (Death, Other)
  Sender: FDA-Public Use
  Company Number: AR-JNJFOC-20220659046

PATIENT
  Age: 77 Year

DRUGS (3)
  1. REMICADE [Suspect]
     Active Substance: INFLIXIMAB
     Indication: Rheumatoid arthritis
     Route: 041
  2. BETAMETHASONE [Concomitant]
     Active Substance: BETAMETHASONE
     Indication: Rheumatoid arthritis
  3. METHOTREXATE [Concomitant]
     Active Substance: METHOTREXATE
     Indication: Rheumatoid arthritis

REACTIONS (4)
  - Death [Fatal]
  - Pelvic fracture [Unknown]
  - Wrist fracture [Unknown]
  - Fall [Unknown]

NARRATIVE: CASE EVENT DATE: 20220327
